FAERS Safety Report 25845079 (Version 1)
Quarter: 2025Q3

REPORT INFORMATION
  Report Type: Spontaneous
  Country: EU (occurrence: EU)
  Receive Date: 20250925
  Receipt Date: 20250925
  Transmission Date: 20251021
  Serious: Yes (Hospitalization, Other)
  Sender: TAKEDA
  Company Number: EU-TAKEDA-2025TUS081574

PATIENT
  Age: 24 Year
  Sex: Male
  Weight: 65 kg

DRUGS (3)
  1. LISDEXAMFETAMINE DIMESYLATE [Interacting]
     Active Substance: LISDEXAMFETAMINE DIMESYLATE
     Indication: Product used for unknown indication
  2. LISDEXAMFETAMINE DIMESYLATE [Interacting]
     Active Substance: LISDEXAMFETAMINE DIMESYLATE
     Dosage: 70 MILLIGRAM, QD
  3. LISDEXAMFETAMINE DIMESYLATE [Interacting]
     Active Substance: LISDEXAMFETAMINE DIMESYLATE
     Indication: Product used for unknown indication
     Dosage: UNK, QD
     Dates: start: 202409, end: 202505

REACTIONS (5)
  - Serotonin syndrome [Unknown]
  - Insomnia [Unknown]
  - Disturbance in attention [Unknown]
  - Alcohol use [Unknown]
  - Drug ineffective [Unknown]
